FAERS Safety Report 9338841 (Version 7)
Quarter: 2013Q4

REPORT INFORMATION
  Report Type: Spontaneous
  Country: GB (occurrence: GB)
  Receive Date: 20130610
  Receipt Date: 20131208
  Transmission Date: 20140711
  Serious: Yes (Other)
  Sender: FDA-Public Use
  Company Number: GB-ROCHE-1178491

PATIENT
  Age: 68 Year
  Sex: Female

DRUGS (4)
  1. HERCEPTIN [Suspect]
     Indication: BREAST CANCER
     Dosage: CYCLE 14
     Route: 042
     Dates: start: 201212
  2. HERCEPTIN [Suspect]
     Dosage: CYCLE 9, CYCLE 10
     Route: 042
  3. HERCEPTIN [Suspect]
     Route: 042
  4. HERCEPTIN [Suspect]
     Dosage: CYCLE 18
     Route: 042

REACTIONS (23)
  - Intervertebral disc degeneration [Unknown]
  - Oral pain [Not Recovered/Not Resolved]
  - Dry mouth [Not Recovered/Not Resolved]
  - Constipation [Not Recovered/Not Resolved]
  - Fatigue [Not Recovered/Not Resolved]
  - Nausea [Not Recovered/Not Resolved]
  - Decreased appetite [Not Recovered/Not Resolved]
  - Headache [Unknown]
  - Mouth ulceration [Unknown]
  - Insomnia [Unknown]
  - Diarrhoea [Unknown]
  - Neck pain [Unknown]
  - Neuropathy peripheral [Unknown]
  - Hot flush [Unknown]
  - Depressed mood [Unknown]
  - Eye pruritus [Unknown]
  - Dry eye [Unknown]
  - Rhinorrhoea [Unknown]
  - Malaise [Unknown]
  - Vertigo [Unknown]
  - Weight decreased [Unknown]
  - Dry skin [Unknown]
  - Dyspnoea exertional [Unknown]
